FAERS Safety Report 7000258-9 (Version None)
Quarter: 2010Q3

REPORT INFORMATION
  Report Type: 
  Country: None (occurrence: None)
  Receive Date: 20100920
  Receipt Date: 20071206
  Transmission Date: 20110219
  Serious: Yes (Other)
  Sender: FDA-Public Use
  Company Number: US-ASTRAZENECA-2006UW22923

PATIENT
  Age: 60 Year
  Sex: Female
  Weight: 68 kg

DRUGS (25)
  1. SEROQUEL [Suspect]
     Indication: DEPRESSION
     Route: 048
     Dates: start: 19990101
  2. SEROQUEL [Suspect]
     Indication: ANXIETY
     Route: 048
     Dates: start: 19990101
  3. SEROQUEL [Suspect]
     Indication: SLEEP DISORDER
     Route: 048
     Dates: start: 19990101
  4. SEROQUEL [Suspect]
     Dosage: 25-600 MG
     Route: 048
     Dates: start: 20020403
  5. SEROQUEL [Suspect]
     Dosage: 25-600 MG
     Route: 048
     Dates: start: 20020403
  6. SEROQUEL [Suspect]
     Dosage: 25-600 MG
     Route: 048
     Dates: start: 20020403
  7. LISINOPRIL [Concomitant]
     Dates: start: 20060808
  8. ACTOS [Concomitant]
     Dates: start: 20060810, end: 20061213
  9. REMERON [Concomitant]
     Dates: start: 20070308
  10. AMITRIPTYLINE [Concomitant]
     Dosage: 50 MG ONE EVERY NIGHT FLUCTUATING
     Route: 048
     Dates: start: 20020403
  11. PREDNISONE [Concomitant]
     Dosage: 10 MG, 20 MG, 40 MG
     Dates: start: 20060623, end: 20071018
  12. METFORMIN [Concomitant]
     Dosage: 500 MG TWO TIMES A DAY, 1000 MG TWO TIMES A DAY
     Dates: start: 20060623
  13. TOPROL-XL [Concomitant]
     Route: 048
     Dates: start: 20060130
  14. RISPERDAL [Concomitant]
     Dosage: 1 MG ONE THREE TIMES A DAY, 1 MG FOUR EVERY NIGHT, 1 MG 2 TO 4 AT NIGHT
     Route: 048
     Dates: start: 20020403
  15. DEPAKOTE [Concomitant]
     Dosage: 250 MG ONE THREE TIMES A DAY AND THREE EVERY NIGHT, 250 MG ONE TWO TIMES A DAY
     Route: 048
     Dates: start: 20020403
  16. WELLBUTRIN SR [Concomitant]
     Dosage: 150 MG TWO TIMES A DAY, 150 MG EVERY MORNING
     Dates: start: 20040403
  17. CELEBREX [Concomitant]
     Dates: start: 20041124
  18. GLIPIZIDE [Concomitant]
     Dates: start: 20060810, end: 20071018
  19. NORVASC [Concomitant]
     Dates: start: 20060810
  20. DILTIAZEM CD [Concomitant]
     Dates: start: 20061018
  21. ATENOLOL [Concomitant]
     Dates: start: 20060130
  22. QUININE [Concomitant]
     Dates: start: 20060810
  23. NORTRIPTYLINE HYDROCHLORIDE [Concomitant]
     Dosage: 10-20 MG ONCE A DAY
     Dates: start: 20071225
  24. PROZAC [Concomitant]
     Dates: start: 20071225
  25. SIMVASTATIN [Concomitant]
     Route: 048
     Dates: start: 20060130

REACTIONS (4)
  - DIABETES MELLITUS [None]
  - DIABETES MELLITUS INADEQUATE CONTROL [None]
  - HYPERGLYCAEMIA [None]
  - TYPE 2 DIABETES MELLITUS [None]
